FAERS Safety Report 5873651-5 (Version None)
Quarter: 2008Q3

REPORT INFORMATION
  Report Type: 
  Country: None (occurrence: None)
  Receive Date: 20080908
  Receipt Date: 20080903
  Transmission Date: 20090109
  Serious: Yes (Other)
  Sender: FDA-Public Use
  Company Number: A0745700A

PATIENT
  Sex: Female

DRUGS (2)
  1. VERAMYST [Suspect]
     Indication: CONJUNCTIVITIS
     Route: 045
  2. UNKNOWN [Concomitant]

REACTIONS (1)
  - CORNEAL DEGENERATION [None]
